FAERS Safety Report 23421902 (Version 1)
Quarter: 2024Q1

REPORT INFORMATION
  Report Type: Spontaneous
  Country: None (occurrence: US)
  Receive Date: 20240119
  Receipt Date: 20240119
  Transmission Date: 20240409
  Serious: Yes (Other)
  Sender: FDA-Public Use
  Company Number: US-Harrow Eye-2151544

PATIENT
  Age: 90 Year
  Sex: Female

DRUGS (1)
  1. FLAREX [Suspect]
     Active Substance: FLUOROMETHOLONE ACETATE
     Indication: Postoperative care
     Route: 047

REACTIONS (1)
  - Transient ischaemic attack [Unknown]
